FAERS Safety Report 12246215 (Version 2)
Quarter: 2016Q2

REPORT INFORMATION
  Report Type: Report from Study
  Country: NL (occurrence: NL)
  Receive Date: 20160407
  Receipt Date: 20160419
  Transmission Date: 20160815
  Serious: Yes (Hospitalization, Disabling, Other)
  Sender: FDA-Public Use
  Company Number: PHHO2014NL010730

PATIENT
  Age: 15 Year
  Sex: Male
  Weight: 40.6 kg

DRUGS (2)
  1. EVEROLIMUS [Suspect]
     Active Substance: EVEROLIMUS
     Dosage: TROUGH 3-7 NG/ML
     Route: 048
     Dates: start: 20140723
  2. EVEROLIMUS [Suspect]
     Active Substance: EVEROLIMUS
     Dosage: 7 PILLS DAILY
     Route: 048
     Dates: start: 20151126

REACTIONS (2)
  - Status epilepticus [Recovered/Resolved]
  - Femur fracture [Recovered/Resolved]

NARRATIVE: CASE EVENT DATE: 20140730
